FAERS Safety Report 19798716 (Version 1)
Quarter: 2021Q3

REPORT INFORMATION
  Report Type: Spontaneous
  Country: SE (occurrence: SE)
  Receive Date: 20210907
  Receipt Date: 20210907
  Transmission Date: 20211014
  Serious: Yes (Disabling)
  Sender: FDA-Public Use
  Company Number: SE-TEVA-2021-SE-1949019

PATIENT
  Age: 73 Year
  Sex: Female
  Weight: 60 kg

DRUGS (4)
  1. AGOMELATINE [Concomitant]
     Active Substance: AGOMELATINE
     Dates: start: 20200216, end: 20210413
  2. QUETIAPINE. [Suspect]
     Active Substance: QUETIAPINE
     Indication: SLEEP DISORDER
     Dosage: DEPOT TABLETS, 2 TABLETS / DAY
     Route: 065
     Dates: start: 20210209, end: 20210413
  3. LERGIGAN 25 MG FILMDRAGERAD TABLETT [Suspect]
     Active Substance: PROMETHAZINE HYDROCHLORIDE
     Indication: SEDATIVE THERAPY
     Dosage: 1 TABLET IF NEEDED
     Dates: start: 20190424, end: 20210413
  4. IMOVANE [Suspect]
     Active Substance: ZOPICLONE
     Indication: SLEEP DISORDER
     Dosage: 15 MILLIGRAM DAILY; 2 TABLETS / DAY
     Dates: start: 20201123, end: 20210413

REACTIONS (1)
  - Polyneuropathy [Not Recovered/Not Resolved]

NARRATIVE: CASE EVENT DATE: 20210410
